FAERS Safety Report 10949076 (Version 1)
Quarter: 2015Q1

REPORT INFORMATION
  Report Type: Spontaneous
  Country: JP (occurrence: JP)
  Receive Date: 20150324
  Receipt Date: 20150324
  Transmission Date: 20150721
  Serious: Yes (Death, Other)
  Sender: FDA-Public Use
  Company Number: JP-ASTELLAS-2006JP003507

PATIENT
  Age: 60 Year
  Sex: Male

DRUGS (74)
  1. PREDNISOLONE. [Suspect]
     Active Substance: PREDNISOLONE
     Route: 065
     Dates: start: 20040514, end: 20040621
  2. SOLU-MEDROL [Concomitant]
     Active Substance: METHYLPREDNISOLONE SODIUM SUCCINATE
     Route: 042
     Dates: start: 20040506, end: 20040508
  3. SOLU-MEDROL [Concomitant]
     Active Substance: METHYLPREDNISOLONE SODIUM SUCCINATE
     Route: 042
     Dates: start: 20040308, end: 20040310
  4. ENDOXAN-P [Concomitant]
     Indication: PRODUCT USED FOR UNKNOWN INDICATION
     Route: 048
     Dates: start: 20040326, end: 20040410
  5. PROSTANDIN [Concomitant]
     Route: 041
     Dates: start: 20040226, end: 20040314
  6. GRAN [Concomitant]
     Active Substance: FILGRASTIM
     Route: 042
     Dates: start: 20040318, end: 20040318
  7. GRAN [Concomitant]
     Active Substance: FILGRASTIM
     Route: 042
     Dates: start: 20040403, end: 20040403
  8. PROGRAF [Suspect]
     Active Substance: TACROLIMUS\TACROLIMUS ANHYDROUS
     Route: 065
     Dates: start: 20040225, end: 20040620
  9. PREDNISOLONE. [Suspect]
     Active Substance: PREDNISOLONE
     Route: 065
     Dates: start: 20040514, end: 20040621
  10. PREDNISOLONE. [Suspect]
     Active Substance: PREDNISOLONE
     Route: 042
     Dates: start: 20040622, end: 20040622
  11. SOLU-MEDROL [Concomitant]
     Active Substance: METHYLPREDNISOLONE SODIUM SUCCINATE
     Indication: PRODUCT USED FOR UNKNOWN INDICATION
     Route: 042
     Dates: start: 20040430, end: 20040502
  12. SOLU-MEDROL [Concomitant]
     Active Substance: METHYLPREDNISOLONE SODIUM SUCCINATE
     Route: 042
     Dates: start: 20040611, end: 20040613
  13. RITUXIMAB(GENETICAL RECOMBINATION) [Concomitant]
     Indication: ANTIBODY TEST ABNORMAL
     Route: 065
     Dates: start: 20040228, end: 20040228
  14. GRAN [Concomitant]
     Active Substance: FILGRASTIM
     Route: 042
     Dates: start: 20040322, end: 20040325
  15. GRAN [Concomitant]
     Active Substance: FILGRASTIM
     Route: 042
     Dates: start: 20040521, end: 20040523
  16. DIFLUCAN [Concomitant]
     Active Substance: FLUCONAZOLE
     Indication: PRODUCT USED FOR UNKNOWN INDICATION
     Route: 065
     Dates: start: 20040302, end: 20040309
  17. DENOSINE [Concomitant]
     Active Substance: GANCICLOVIR
     Indication: PRODUCT USED FOR UNKNOWN INDICATION
     Route: 041
     Dates: start: 20040308, end: 20040309
  18. DENOSINE [Concomitant]
     Active Substance: GANCICLOVIR
     Route: 041
     Dates: start: 20040511, end: 20040511
  19. UNASYN [Concomitant]
     Active Substance: AMPICILLIN SODIUM\SULBACTAM SODIUM
     Indication: PRODUCT USED FOR UNKNOWN INDICATION
     Route: 065
     Dates: start: 20040603, end: 20040603
  20. METHYLPREDNISOLON [Suspect]
     Active Substance: METHYLPREDNISOLONE
     Route: 065
     Dates: start: 20040623, end: 20040624
  21. AZATHIOPRINE. [Concomitant]
     Active Substance: AZATHIOPRINE
     Indication: LIVER TRANSPLANT
     Route: 065
     Dates: start: 20040531, end: 20040606
  22. AZATHIOPRINE. [Concomitant]
     Active Substance: AZATHIOPRINE
     Route: 065
     Dates: start: 20040609, end: 20040616
  23. PREDNISOLONE. [Suspect]
     Active Substance: PREDNISOLONE
     Indication: LIVER TRANSPLANT
     Route: 065
     Dates: start: 20040227, end: 20040229
  24. PREDNISOLONE. [Suspect]
     Active Substance: PREDNISOLONE
     Route: 065
     Dates: start: 20040327, end: 20040416
  25. SOLU-MEDROL [Concomitant]
     Active Substance: METHYLPREDNISOLONE SODIUM SUCCINATE
     Route: 042
     Dates: start: 20040623, end: 20040624
  26. ENDOXAN [Concomitant]
     Active Substance: CYCLOPHOSPHAMIDE
     Indication: LIVER TRANSPLANT
     Route: 042
     Dates: start: 20040222, end: 20040222
  27. GRAN [Concomitant]
     Active Substance: FILGRASTIM
     Route: 042
     Dates: start: 20040409, end: 20040412
  28. DENOSINE [Concomitant]
     Active Substance: GANCICLOVIR
     Route: 041
     Dates: start: 20040327, end: 20040403
  29. LOXONIN [Concomitant]
     Active Substance: LOXOPROFEN SODIUM
     Indication: PRODUCT USED FOR UNKNOWN INDICATION
     Route: 048
     Dates: start: 20040603, end: 20040603
  30. PROSTANDIN [Concomitant]
     Indication: LIVER TRANSPLANT
     Route: 013
     Dates: start: 20040223, end: 20040314
  31. GRAN [Concomitant]
     Active Substance: FILGRASTIM
     Indication: PRODUCT USED FOR UNKNOWN INDICATION
     Route: 042
     Dates: start: 20040220, end: 20040220
  32. CELLCEPT [Concomitant]
     Active Substance: MYCOPHENOLATE MOFETIL\MYCOPHENOLATE MOFETIL HYDROCHLORIDE
     Indication: PRODUCT USED FOR UNKNOWN INDICATION
     Route: 048
     Dates: start: 20040309, end: 20040322
  33. FUNGUARD [Concomitant]
     Active Substance: MICAFUNGIN SODIUM
     Route: 041
     Dates: start: 20040310, end: 20040317
  34. BAKTAR [Concomitant]
     Active Substance: SULFAMETHOXAZOLE\TRIMETHOPRIM
     Indication: PRODUCT USED FOR UNKNOWN INDICATION
     Route: 048
     Dates: start: 20040302, end: 20040306
  35. VANCOMYCIN HYDROCHLORIDE. [Concomitant]
     Active Substance: VANCOMYCIN HYDROCHLORIDE
     Indication: PRODUCT USED FOR UNKNOWN INDICATION
     Route: 065
     Dates: start: 20040306, end: 20040308
  36. VANCOMYCIN HYDROCHLORIDE. [Concomitant]
     Active Substance: VANCOMYCIN HYDROCHLORIDE
     Dosage: 0.5 MG, ONCE DAILY
     Route: 065
     Dates: start: 20040410, end: 20040416
  37. VANCOMYCIN HYDROCHLORIDE. [Concomitant]
     Active Substance: VANCOMYCIN HYDROCHLORIDE
     Route: 065
     Dates: start: 20040616, end: 20040624
  38. SOLU-MEDROL [Concomitant]
     Active Substance: METHYLPREDNISOLONE SODIUM SUCCINATE
     Route: 042
     Dates: start: 20040513, end: 20040513
  39. SOLU-MEDROL [Concomitant]
     Active Substance: METHYLPREDNISOLONE SODIUM SUCCINATE
     Route: 042
     Dates: start: 20040223, end: 20040301
  40. CELLCEPT [Concomitant]
     Active Substance: MYCOPHENOLATE MOFETIL\MYCOPHENOLATE MOFETIL HYDROCHLORIDE
     Route: 048
     Dates: start: 20040507, end: 20040510
  41. BAKTAR [Concomitant]
     Active Substance: SULFAMETHOXAZOLE\TRIMETHOPRIM
     Route: 048
     Dates: start: 20040318, end: 20040622
  42. VANCOMYCIN HYDROCHLORIDE. [Concomitant]
     Active Substance: VANCOMYCIN HYDROCHLORIDE
     Route: 065
     Dates: start: 20040427, end: 20040503
  43. DENOSINE [Concomitant]
     Active Substance: GANCICLOVIR
     Route: 041
     Dates: start: 20040318, end: 20040319
  44. DENOSINE [Concomitant]
     Active Substance: GANCICLOVIR
     Route: 041
     Dates: start: 20040610, end: 20040610
  45. LAMIVUDINE. [Concomitant]
     Active Substance: LAMIVUDINE
     Indication: PRODUCT USED FOR UNKNOWN INDICATION
     Route: 048
     Dates: start: 20040209, end: 20040402
  46. METHYLPREDNISOLON [Suspect]
     Active Substance: METHYLPREDNISOLONE
     Route: 065
     Dates: start: 20040308, end: 20040310
  47. AZATHIOPRINE. [Concomitant]
     Active Substance: AZATHIOPRINE
     Route: 065
     Dates: start: 20040607, end: 20040608
  48. PREDNISOLONE. [Suspect]
     Active Substance: PREDNISOLONE
     Route: 065
     Dates: start: 20040302, end: 20040326
  49. PREDNISOLONE. [Suspect]
     Active Substance: PREDNISOLONE
     Route: 065
     Dates: start: 20040417, end: 20040513
  50. SOLU-MEDROL [Concomitant]
     Active Substance: METHYLPREDNISOLONE SODIUM SUCCINATE
     Route: 042
     Dates: start: 20040512, end: 20040512
  51. ENDOXAN [Concomitant]
     Active Substance: CYCLOPHOSPHAMIDE
     Route: 042
     Dates: start: 20040224, end: 20040308
  52. DENOSINE [Concomitant]
     Active Substance: GANCICLOVIR
     Route: 041
     Dates: start: 20040611, end: 20040614
  53. BUFFERIN [Concomitant]
     Active Substance: ASPIRIN
     Indication: PRODUCT USED FOR UNKNOWN INDICATION
     Route: 048
     Dates: start: 20040603, end: 20040603
  54. ZOVIRAX [Concomitant]
     Active Substance: ACYCLOVIR
     Indication: PRODUCT USED FOR UNKNOWN INDICATION
     Route: 065
     Dates: start: 20040302, end: 20040307
  55. ZOVIRAX [Concomitant]
     Active Substance: ACYCLOVIR
     Route: 065
     Dates: start: 20040318, end: 20040522
  56. PROGRAF [Suspect]
     Active Substance: TACROLIMUS\TACROLIMUS ANHYDROUS
     Indication: LIVER TRANSPLANT
     Route: 065
     Dates: start: 20040224, end: 20040224
  57. PROGRAF [Suspect]
     Active Substance: TACROLIMUS\TACROLIMUS ANHYDROUS
     Route: 065
     Dates: start: 20040622, end: 20040622
  58. METHYLPREDNISOLON [Suspect]
     Active Substance: METHYLPREDNISOLONE
     Indication: LIVER TRANSPLANT
     Route: 065
     Dates: start: 20040223, end: 20040301
  59. SOLU-MEDROL [Concomitant]
     Active Substance: METHYLPREDNISOLONE SODIUM SUCCINATE
     Route: 042
     Dates: start: 20040511, end: 20040511
  60. AZATHIOPRINE. [Concomitant]
     Active Substance: AZATHIOPRINE
     Indication: PRODUCT USED FOR UNKNOWN INDICATION
     Route: 048
     Dates: start: 20040601, end: 20040616
  61. FUNGUARD [Concomitant]
     Active Substance: MICAFUNGIN SODIUM
     Indication: PRODUCT USED FOR UNKNOWN INDICATION
     Route: 041
     Dates: start: 20040217, end: 20040301
  62. VANCOMYCIN HYDROCHLORIDE. [Concomitant]
     Active Substance: VANCOMYCIN HYDROCHLORIDE
     Route: 065
     Dates: start: 20040517, end: 20040524
  63. DIFLUCAN [Concomitant]
     Active Substance: FLUCONAZOLE
     Route: 065
     Dates: start: 20040318, end: 20040603
  64. CRAVIT [Concomitant]
     Active Substance: LEVOFLOXACIN
     Indication: PRODUCT USED FOR UNKNOWN INDICATION
     Route: 048
     Dates: start: 20040306, end: 20040309
  65. PROGRAF [Suspect]
     Active Substance: TACROLIMUS\TACROLIMUS ANHYDROUS
     Route: 065
     Dates: start: 20040621, end: 20040621
  66. PREDNISOLONE. [Suspect]
     Active Substance: PREDNISOLONE
     Indication: LIVER TRANSPLANT
     Route: 013
     Dates: start: 20040302, end: 20040505
  67. METHYLPREDNISOLON [Suspect]
     Active Substance: METHYLPREDNISOLONE
     Route: 065
     Dates: start: 20040519, end: 20040521
  68. METHYLPREDNISOLON [Suspect]
     Active Substance: METHYLPREDNISOLONE
     Route: 065
     Dates: start: 20040611, end: 20040613
  69. GRAN [Concomitant]
     Active Substance: FILGRASTIM
     Route: 042
     Dates: start: 20040320, end: 20040320
  70. DENOSINE [Concomitant]
     Active Substance: GANCICLOVIR
     Route: 041
     Dates: start: 20040315, end: 20040317
  71. DENOSINE [Concomitant]
     Active Substance: GANCICLOVIR
     Route: 041
     Dates: start: 20040512, end: 20040516
  72. DENOSINE [Concomitant]
     Active Substance: GANCICLOVIR
     Route: 041
     Dates: start: 20040517, end: 20040517
  73. FOY [Concomitant]
     Active Substance: GABEXATE MESYLATE
     Indication: LIVER TRANSPLANT
     Route: 042
     Dates: start: 20040223, end: 20040314
  74. GANCICLOVIR. [Concomitant]
     Active Substance: GANCICLOVIR
     Indication: PRODUCT USED FOR UNKNOWN INDICATION
     Route: 065
     Dates: start: 20040303, end: 20040307

REACTIONS (4)
  - Hepatic haematoma [Fatal]
  - Hepatic failure [Fatal]
  - Disseminated intravascular coagulation [Fatal]
  - Hepatic infarction [Unknown]

NARRATIVE: CASE EVENT DATE: 20040621
